FAERS Safety Report 16474623 (Version 1)
Quarter: 2019Q3

REPORT INFORMATION
  Report Type: Spontaneous
  Country: US (occurrence: US)
  Receive Date: 20190624
  Receipt Date: 20190624
  Transmission Date: 20191004
  Serious: Yes (Other)
  Sender: FDA-Public Use
  Company Number: None

PATIENT
  Age: 64 Year
  Sex: Female
  Weight: 76.4 kg

DRUGS (6)
  1. LEUCOVORIN. [Concomitant]
     Active Substance: LEUCOVORIN
     Dates: start: 20190618
  2. DONEPEZIL. [Concomitant]
     Active Substance: DONEPEZIL
     Dates: start: 20190616
  3. FLUOROURACIL. [Concomitant]
     Active Substance: FLUOROURACIL
     Dates: start: 20190618
  4. MAGNESIUM IV [Concomitant]
  5. CEFEPIME [Suspect]
     Active Substance: CEFEPIME HYDROCHLORIDE
     Indication: URINARY TRACT INFECTION
     Route: 040
     Dates: start: 20190612, end: 20190619
  6. OXALIPLATIN. [Concomitant]
     Active Substance: OXALIPLATIN
     Dates: start: 20190618

REACTIONS (2)
  - Mental status changes [None]
  - Muscle twitching [None]

NARRATIVE: CASE EVENT DATE: 20190618
